FAERS Safety Report 4676839-4 (Version None)
Quarter: 2005Q2

REPORT INFORMATION
  Report Type: 
  Country: None (occurrence: None)
  Receive Date: 20050527
  Receipt Date: 20050309
  Transmission Date: 20051028
  Serious: Yes (Disabling)
  Sender: FDA-Public Use
  Company Number: US-MERCK-0503USA01686

PATIENT
  Age: 44 Year
  Sex: Female

DRUGS (2)
  1. VIOXX [Suspect]
     Indication: HEADACHE
     Route: 048
     Dates: start: 20040814, end: 20040827
  2. NAPROXEN [Concomitant]
     Route: 065

REACTIONS (7)
  - ANTINUCLEAR ANTIBODY POSITIVE [None]
  - EMOTIONAL DISTRESS [None]
  - HAEMORRHAGIC STROKE [None]
  - HEADACHE [None]
  - INJURY [None]
  - TOURETTE'S DISORDER [None]
  - WHITE BLOOD CELL COUNT INCREASED [None]
